FAERS Safety Report 5167985-X (Version None)
Quarter: 2006Q4

REPORT INFORMATION
  Report Type: 
  Country: None (occurrence: None)
  Receive Date: 20061208
  Receipt Date: 20060103
  Transmission Date: 20070319
  Serious: No
  Sender: FDA-Public Use
  Company Number: US-GLAXOSMITHKLINE-A0587552A

PATIENT
  Age: 48 Year
  Sex: Female

DRUGS (8)
  1. AVANDAMET [Suspect]
     Dosage: .5TAB TWICE PER DAY
     Route: 048
  2. AVANDIA [Suspect]
     Dosage: 2MG PER DAY
     Route: 048
     Dates: start: 20050301, end: 20051001
  3. METFORMIN [Suspect]
     Dosage: 500MG PER DAY
     Dates: start: 20050301, end: 20051001
  4. GARLIC PILLS [Concomitant]
  5. GREEN TEA [Concomitant]
  6. LANTUS [Concomitant]
  7. GLUCOTROL XL [Concomitant]
  8. TYLENOL PM [Concomitant]
     Route: 065

REACTIONS (10)
  - ABDOMINAL DISTENSION [None]
  - AGITATION [None]
  - BLOOD CHOLESTEROL INCREASED [None]
  - BLOOD GLUCOSE INCREASED [None]
  - CRYING [None]
  - DYSPNOEA [None]
  - INCREASED APPETITE [None]
  - IRRITABILITY [None]
  - NOCTURIA [None]
  - SLEEP DISORDER [None]
